FAERS Safety Report 17176176 (Version 1)
Quarter: 2019Q4

REPORT INFORMATION
  Report Type: Spontaneous
  Country: DE (occurrence: DE)
  Receive Date: 20191219
  Receipt Date: 20191219
  Transmission Date: 20200122
  Serious: Yes (Hospitalization)
  Sender: FDA-Public Use
  Company Number: DE-ROCHE-2500712

PATIENT
  Age: 28 Year
  Sex: Female

DRUGS (3)
  1. IMODIUM [Suspect]
     Active Substance: LOPERAMIDE HYDROCHLORIDE
     Indication: SUICIDE ATTEMPT
     Route: 048
  2. VALIUM [Suspect]
     Active Substance: DIAZEPAM
     Indication: SUICIDE ATTEMPT
     Route: 048
  3. TAMBOCOR [Suspect]
     Active Substance: FLECAINIDE ACETATE
     Indication: SUICIDE ATTEMPT
     Route: 048

REACTIONS (3)
  - Hypoxia [Recovered/Resolved]
  - Acidosis [Recovered/Resolved]
  - Overdose [Unknown]
